FAERS Safety Report 8949604 (Version 3)
Quarter: 2013Q4

REPORT INFORMATION
  Report Type: Report from Study
  Country: JP (occurrence: JP)
  Receive Date: 20121206
  Receipt Date: 20131108
  Transmission Date: 20140711
  Serious: Yes (Other)
  Sender: FDA-Public Use
  Company Number: JP-VERTEX PHARMACEUTICALS INC.-2012-025655

PATIENT
  Age: 62 Year
  Sex: Female

DRUGS (13)
  1. VX-950 (TELAPREVIR) [Suspect]
     Indication: CHRONIC HEPATITIS C
     Dosage: 1500 MG, QD
     Route: 048
     Dates: start: 20120403
  2. RIBAVIRIN [Suspect]
     Indication: CHRONIC HEPATITIS C
     Dosage: 400 MG, QD
     Route: 048
     Dates: start: 20120403, end: 20120409
  3. RIBAVIRIN [Suspect]
     Dosage: 200 MG, QD
     Route: 048
     Dates: start: 20120410, end: 20120828
  4. PEGINTRON [Suspect]
     Indication: CHRONIC HEPATITIS C
     Dosage: 1.5 ?G/KG, QW
     Route: 058
     Dates: start: 20120403, end: 20120605
  5. PEGINTRON [Suspect]
     Dosage: 1.125 ?G/KG, QW
     Route: 058
     Dates: start: 20120612, end: 20120703
  6. PEGINTRON [Suspect]
     Dosage: 1.5 ?G/KG, QW
     Route: 058
     Dates: start: 20120710, end: 20120724
  7. PEGINTRON [Suspect]
     Dosage: 1.125 ?G/KG, QW
     Route: 058
     Dates: start: 20120731, end: 20120813
  8. PEGINTRON [Suspect]
     Dosage: 1.5 ?G/KG, QW
     Route: 058
     Dates: start: 20130821, end: 20120821
  9. BLOPRESS [Concomitant]
     Dosage: 4 MG, QD
     Route: 048
     Dates: start: 20120403
  10. BLOPRESS [Concomitant]
     Dosage: 4 MG, QD
     Route: 048
     Dates: start: 20120403
  11. DIOVAN [Concomitant]
     Dosage: 40 MG, QD
     Route: 048
     Dates: start: 20120529
  12. THYRADIN-S [Concomitant]
     Dosage: 50 ?G, QD
     Route: 048
  13. THYRADIN-S [Concomitant]
     Dosage: 50 ?G, QD
     Route: 048
     Dates: start: 20120403

REACTIONS (1)
  - Neutrophil count decreased [Recovered/Resolved]
